FAERS Safety Report 5852655-2 (Version None)
Quarter: 2008Q3

REPORT INFORMATION
  Report Type: 
  Country: None (occurrence: None)
  Receive Date: 20080821
  Receipt Date: 20080818
  Transmission Date: 20090109
  Serious: Yes (Hospitalization)
  Sender: FDA-Public Use
  Company Number: B0533468A

PATIENT
  Age: 31 Year
  Sex: Female

DRUGS (4)
  1. AUGMENTIN [Suspect]
     Indication: ANTIBIOTIC PROPHYLAXIS
     Route: 048
     Dates: start: 20080201, end: 20080303
  2. OFLOCET [Suspect]
     Indication: ANTIBIOTIC PROPHYLAXIS
     Route: 048
     Dates: start: 20080221, end: 20080303
  3. METHADONE HCL [Concomitant]
     Indication: DRUG DEPENDENCE
     Dosage: 50MG PER DAY
     Route: 048
     Dates: start: 20010101
  4. ULTRA LEVURE [Concomitant]
     Indication: DIARRHOEA
     Route: 065
     Dates: start: 20080201

REACTIONS (12)
  - ABDOMINAL PAIN [None]
  - BACTERIAL INFECTION [None]
  - CLOSTRIDIAL INFECTION [None]
  - DIARRHOEA [None]
  - HYPOKALAEMIA [None]
  - INFLAMMATION [None]
  - LEUKOCYTOSIS [None]
  - NITRITE URINE PRESENT [None]
  - ORAL FUNGAL INFECTION [None]
  - PSEUDOMEMBRANOUS COLITIS [None]
  - PYREXIA [None]
  - WHITE BLOOD CELLS URINE POSITIVE [None]
